FAERS Safety Report 10598932 (Version 1)
Quarter: 2014Q4

REPORT INFORMATION
  Report Type: Spontaneous
  Country: US (occurrence: None)
  Receive Date: 20141119
  Receipt Date: 20141119
  Transmission Date: 20150529
  Serious: No
  Sender: FDA-Public Use
  Company Number: 1000069906

PATIENT
  Age: 72 Year
  Sex: Female

DRUGS (5)
  1. TUDORZA PRESSAIR [Suspect]
     Active Substance: ACLIDINIUM BROMIDE
     Indication: CHRONIC OBSTRUCTIVE PULMONARY DISEASE
     Dosage: 800 MCG (400 MCG,2 IN 1 D),RESPIRATORY
     Route: 055
     Dates: start: 201407
  2. XOPENEX (LEVOSALBUTAMOL HYDROCHLORIDE) (LEVOSALBUTAMOL HYDROCHLORIDE) [Concomitant]
  3. TUDORZA PRESSAIR [Suspect]
     Active Substance: ACLIDINIUM BROMIDE
     Indication: BRONCHITIS CHRONIC
     Dosage: 800 MCG (400 MCG,2 IN 1 D),RESPIRATORY
     Route: 055
     Dates: start: 201407
  4. XANAX (ALPRAZOLAM) (ALPRAZOLAM) [Concomitant]
  5. VITAMINS NOS [Concomitant]
     Active Substance: VITAMINS

REACTIONS (5)
  - Dizziness [None]
  - Night sweats [None]
  - Dry throat [None]
  - Headache [None]
  - Choking sensation [None]

NARRATIVE: CASE EVENT DATE: 2014
